FAERS Safety Report 8736619 (Version 4)
Quarter: 2015Q1

REPORT INFORMATION
  Report Type: Spontaneous
  Country: GB (occurrence: GB)
  Receive Date: 20120822
  Receipt Date: 20150126
  Transmission Date: 20150721
  Serious: Yes (Death, Other)
  Sender: FDA-Public Use
  Company Number: GB-ALEXION PHARMACEUTICALS INC.-A201201535

PATIENT

DRUGS (13)
  1. ALFENTANIL [Concomitant]
     Active Substance: ALFENTANIL
     Indication: ANALGESIC THERAPY
     Dosage: 1 MCG/KG/MIN
     Route: 042
     Dates: start: 20120809, end: 20120811
  2. MANNITOL. [Concomitant]
     Active Substance: MANNITOL
     Indication: PRODUCT USED FOR UNKNOWN INDICATION
     Dosage: 66 ML, PRN
     Route: 042
     Dates: start: 20120809, end: 20120811
  3. PHENYTOIN. [Concomitant]
     Active Substance: PHENYTOIN
     Indication: CONVULSION PROPHYLAXIS
     Dosage: 80 MG, BID
     Route: 042
     Dates: start: 20120809, end: 20120811
  4. ROCURONIUM [Concomitant]
     Active Substance: ROCURONIUM BROMIDE
     Indication: ANAESTHESIA
     Dosage: 30 MG, PRN
     Route: 042
     Dates: start: 20120809, end: 20120810
  5. SOLIRIS [Suspect]
     Active Substance: ECULIZUMAB
     Indication: ESCHERICHIA TEST POSITIVE
     Dosage: 600 MG, SINGLE
     Route: 042
     Dates: start: 20120810, end: 20120810
  6. SOLIRIS [Suspect]
     Active Substance: ECULIZUMAB
     Indication: HAEMOLYTIC URAEMIC SYNDROME
  7. RANITIDINE                         /00550802/ [Concomitant]
     Indication: PROPHYLAXIS
     Dosage: 25 MG, QD
     Route: 042
     Dates: start: 20120809, end: 20120811
  8. PARACETAMOL [Concomitant]
     Active Substance: ACETAMINOPHEN
     Indication: PYREXIA
     Dosage: 480 MG, PRN
     Route: 042
     Dates: start: 20120809, end: 20120809
  9. ALFENTANIL [Concomitant]
     Active Substance: ALFENTANIL
     Indication: SEDATION
  10. MIDAZOLAM [Concomitant]
     Active Substance: MIDAZOLAM\MIDAZOLAM HYDROCHLORIDE
     Indication: SEDATION
     Dosage: 0.2 MG/KG/HR
     Route: 042
     Dates: start: 20120809, end: 20120811
  11. BENZYLPENICILLIN [Concomitant]
     Active Substance: PENICILLIN G
     Indication: PROPHYLAXIS
     Dosage: 800 MG X 2, UNK
     Route: 042
     Dates: end: 20120811
  12. SOLIRIS [Suspect]
     Active Substance: ECULIZUMAB
     Indication: OFF LABEL USE
  13. MAGNESIUM SULPHATE                 /07507001/ [Concomitant]
     Active Substance: MAGNESIUM SULFATE
     Indication: PRODUCT USED FOR UNKNOWN INDICATION
     Dosage: 6.5 MMOL STAT
     Route: 042
     Dates: start: 20120810, end: 20120811

REACTIONS (9)
  - Bradycardia [Unknown]
  - Escherichia infection [Fatal]
  - Intracranial pressure increased [Not Recovered/Not Resolved]
  - Off label use [Unknown]
  - Condition aggravated [Fatal]
  - Haemolytic uraemic syndrome [Fatal]
  - Pupil fixed [Not Recovered/Not Resolved]
  - Drug ineffective [Unknown]
  - Cerebral infarction [Not Recovered/Not Resolved]

NARRATIVE: CASE EVENT DATE: 20120810
